FAERS Safety Report 6168092-X (Version None)
Quarter: 2009Q2

REPORT INFORMATION
  Report Type: 
  Country: None (occurrence: None)
  Receive Date: 20090423
  Receipt Date: 20090423
  Transmission Date: 20091009
  Serious: Yes (Hospitalization)
  Sender: FDA-Public Use
  Company Number: None

PATIENT
  Sex: Female
  Weight: 72.5755 kg

DRUGS (9)
  1. LABETALOL HCL [Suspect]
     Indication: HYPERTENSION
     Dosage: 1 TABLET TWICE DAILY PO
     Route: 048
     Dates: start: 20090210, end: 20090318
  2. CITALOPRAM HYDROBROMIDE [Concomitant]
  3. FUROSEMIDE [Concomitant]
  4. COZAAR [Concomitant]
  5. OMEPRAZOLE [Concomitant]
  6. DILTIAZEM [Concomitant]
  7. ALENDRONATE [Concomitant]
  8. METOPROLOL TARTRATE [Concomitant]
  9. SIMVASTATIN [Concomitant]

REACTIONS (2)
  - BLOOD PRESSURE INCREASED [None]
  - PRODUCT SUBSTITUTION ISSUE [None]
